FAERS Safety Report 7283426-0 (Version None)
Quarter: 2011Q1

REPORT INFORMATION
  Report Type: 
  Country: None (occurrence: None)
  Receive Date: 20110209
  Receipt Date: 20101029
  Transmission Date: 20110831
  Serious: No
  Sender: FDA-Public Use
  Company Number: A0890980A

PATIENT

DRUGS (1)
  1. PAXIL [Suspect]
     Dates: start: 20090101

REACTIONS (1)
  - DRUG INEFFECTIVE [None]
